FAERS Safety Report 6100272-1 (Version None)
Quarter: 2009Q1

REPORT INFORMATION
  Report Type: 
  Country: None (occurrence: None)
  Receive Date: 20090303
  Receipt Date: 20090219
  Transmission Date: 20090719
  Serious: Yes (Hospitalization)
  Sender: FDA-Public Use
  Company Number: CA-PFIZER INC-2009173163

PATIENT

DRUGS (1)
  1. NARDIL [Suspect]

REACTIONS (1)
  - MALAISE [None]
